FAERS Safety Report 13299372 (Version 2)
Quarter: 2017Q1

REPORT INFORMATION
  Report Type: Spontaneous
  Country: JP (occurrence: JP)
  Receive Date: 20170306
  Receipt Date: 20170316
  Transmission Date: 20170428
  Serious: Yes (Other)
  Sender: FDA-Public Use
  Company Number: JP-PFIZER INC-2017010601

PATIENT
  Age: 25 Year
  Sex: Male
  Weight: 92 kg

DRUGS (12)
  1. LYRICA [Suspect]
     Active Substance: PREGABALIN
     Indication: HYPOAESTHESIA
     Dosage: 25 MG, 1X/DAY
     Route: 048
     Dates: start: 20160805, end: 20160818
  2. LYRICA [Suspect]
     Active Substance: PREGABALIN
     Dosage: 75 MG, 1X/DAY
     Route: 048
     Dates: start: 20160819, end: 20160828
  3. LYRICA [Suspect]
     Active Substance: PREGABALIN
     Dosage: 100 MG, 2X/DAY
     Route: 048
     Dates: start: 20161219, end: 20161220
  4. TRAMCET [Suspect]
     Active Substance: ACETAMINOPHEN\TRAMADOL
     Indication: BACK PAIN
     Dosage: 1 DF, 1X/DAY
     Route: 048
     Dates: start: 20161114, end: 20161120
  5. MOBIC [Concomitant]
     Active Substance: MELOXICAM
     Indication: BACK PAIN
     Dosage: 10 MG, 1X/DAY
     Route: 048
     Dates: start: 20160829, end: 20160914
  6. NOVAMIN /00013301/ [Suspect]
     Active Substance: PROCHLORPERAZINE MALEATE
     Indication: PROPHYLAXIS OF NAUSEA AND VOMITING
     Dosage: 5 MG, 3X/DAY
     Route: 048
     Dates: start: 20161114, end: 20161220
  7. MOBIC [Concomitant]
     Active Substance: MELOXICAM
     Dosage: 5 MG, 1X/DAY
     Route: 048
     Dates: start: 20160915, end: 20161019
  8. TRAMCET [Suspect]
     Active Substance: ACETAMINOPHEN\TRAMADOL
     Dosage: 1 DF, 2X/DAY
     Route: 048
     Dates: start: 20161121, end: 20161128
  9. OPALMON [Concomitant]
     Active Substance: LIMAPROST
     Indication: BACK PAIN
     Dosage: 5 UG, 3X/DAY
     Route: 048
     Dates: start: 20160819, end: 20160828
  10. LYRICA [Suspect]
     Active Substance: PREGABALIN
     Dosage: 75 MG, 2X/DAY
     Route: 048
     Dates: start: 20160929, end: 20161218
  11. LYRICA [Suspect]
     Active Substance: PREGABALIN
     Dosage: 100 MG, DAILY (25MG IN THE MORNING AND 75 MG BEFORE SLEEPING)
     Route: 048
     Dates: start: 20160829, end: 20160928
  12. TRAMCET [Suspect]
     Active Substance: ACETAMINOPHEN\TRAMADOL
     Dosage: 1 DF, 3X/DAY
     Route: 048
     Dates: start: 20161129, end: 20161220

REACTIONS (4)
  - Loss of consciousness [Recovered/Resolved]
  - Accident at work [Unknown]
  - Road traffic accident [Unknown]
  - Hepatic function abnormal [Unknown]

NARRATIVE: CASE EVENT DATE: 20161003
